FAERS Safety Report 5809144-0 (Version None)
Quarter: 2008Q3

REPORT INFORMATION
  Report Type: 
  Country: None (occurrence: None)
  Receive Date: 20080714
  Receipt Date: 20080702
  Transmission Date: 20090109
  Serious: Yes (Hospitalization)
  Sender: FDA-Public Use
  Company Number: US-PFIZER INC-2008042120

PATIENT
  Sex: Female
  Weight: 59 kg

DRUGS (10)
  1. DEPO-ESTRADIOL SOLUTION, STERILE [Suspect]
     Indication: MENOPAUSAL SYMPTOMS
     Route: 042
  2. PLAVIX [Concomitant]
  3. NEXIUM [Concomitant]
  4. LOPRESSOR [Concomitant]
  5. NICODERM [Concomitant]
  6. OXYCONTIN [Concomitant]
  7. MIRALAX [Concomitant]
  8. ZOLOFT [Concomitant]
  9. COUMADIN [Concomitant]
  10. HEPARIN [Concomitant]
     Route: 042

REACTIONS (6)
  - ABDOMINAL PAIN [None]
  - ATAXIA [None]
  - INCORRECT DOSE ADMINISTERED [None]
  - INCORRECT ROUTE OF DRUG ADMINISTRATION [None]
  - NAUSEA [None]
  - PERIPHERAL VASCULAR DISORDER [None]
